FAERS Safety Report 16360475 (Version 5)
Quarter: 2020Q3

REPORT INFORMATION
  Report Type: Spontaneous
  Country: US (occurrence: US)
  Receive Date: 20190528
  Receipt Date: 20200826
  Transmission Date: 20201102
  Serious: Yes (Hospitalization, Other)
  Sender: FDA-Public Use
  Company Number: US-GILEAD-2019-0409428

PATIENT
  Age: 46 Year
  Sex: Male
  Weight: 74.38 kg

DRUGS (12)
  1. EPZICOM [Concomitant]
     Active Substance: ABACAVIR SULFATE\LAMIVUDINE
  2. NORVIR [Concomitant]
     Active Substance: RITONAVIR
  3. ABACAVIR/LAMIVUDINE [ABACAVIR;LAMIVUDINE] [Concomitant]
  4. TRUVADA [Suspect]
     Active Substance: EMTRICITABINE\TENOFOVIR DISOPROXIL FUMARATE
     Indication: HIV INFECTION
     Dosage: UNK
     Route: 048
     Dates: start: 2006, end: 2011
  5. KALETRA [Concomitant]
     Active Substance: LOPINAVIR\RITONAVIR
  6. PREZISTA [Concomitant]
     Active Substance: DARUNAVIR ETHANOLATE
  7. RITONAVIR. [Concomitant]
     Active Substance: RITONAVIR
  8. REYATAZ [Concomitant]
     Active Substance: ATAZANAVIR SULFATE
  9. DRONABINOL. [Concomitant]
     Active Substance: DRONABINOL
  10. AMLODIPINE BESYLATE. [Concomitant]
     Active Substance: AMLODIPINE BESYLATE
  11. OLANZAPINE. [Concomitant]
     Active Substance: OLANZAPINE
  12. SEROQUEL [Concomitant]
     Active Substance: QUETIAPINE FUMARATE

REACTIONS (14)
  - Chronic kidney disease [Not Recovered/Not Resolved]
  - Osteoporosis [Not Recovered/Not Resolved]
  - Acute kidney injury [Not Recovered/Not Resolved]
  - Anxiety [Not Recovered/Not Resolved]
  - Pain [Not Recovered/Not Resolved]
  - Gait disturbance [Not Recovered/Not Resolved]
  - Fracture [Not Recovered/Not Resolved]
  - Nephropathy [Not Recovered/Not Resolved]
  - Spinal compression fracture [Recovered/Resolved]
  - Ankle fracture [Recovered/Resolved]
  - Anhedonia [Not Recovered/Not Resolved]
  - Bone density decreased [Not Recovered/Not Resolved]
  - Emotional distress [Not Recovered/Not Resolved]
  - Economic problem [Not Recovered/Not Resolved]

NARRATIVE: CASE EVENT DATE: 2006
